FAERS Safety Report 9386905 (Version 1)
Quarter: 2013Q3

REPORT INFORMATION
  Report Type: Spontaneous
  Country: US (occurrence: US)
  Receive Date: 20130708
  Receipt Date: 20130708
  Transmission Date: 20140515
  Serious: Yes (Hospitalization)
  Sender: FDA-Public Use
  Company Number: US-JNJFOC-20130618857

PATIENT
  Age: 76 Year
  Sex: Male
  Weight: 79.8 kg

DRUGS (15)
  1. XARELTO [Suspect]
     Indication: CEREBROVASCULAR ACCIDENT PROPHYLAXIS
     Dosage: EVERY DAY AFTER NOON OR EVERY EVENING (QPM)
     Route: 048
  2. XARELTO [Suspect]
     Indication: ATRIAL FIBRILLATION
     Dosage: EVERY DAY AFTER NOON OR EVERY EVENING (QPM)
     Route: 048
  3. VOTRIENT [Suspect]
     Indication: RENAL CANCER
     Route: 048
  4. PERCOCET [Concomitant]
     Route: 065
  5. ZOFRAN [Concomitant]
     Route: 065
  6. MECLIZINE [Concomitant]
     Route: 065
  7. BUMEX [Concomitant]
     Route: 065
  8. NORVASC [Concomitant]
     Route: 065
  9. AMARYL [Concomitant]
     Route: 065
  10. ATIVAN [Concomitant]
     Route: 065
  11. AMBIEN [Concomitant]
     Route: 065
  12. HYDRALAZINE [Concomitant]
     Route: 065
  13. LOPRESSOR [Concomitant]
     Route: 065
  14. BISACODYL [Concomitant]
     Route: 065
  15. MORPHINE [Concomitant]
     Route: 065

REACTIONS (2)
  - Haemoptysis [Recovered/Resolved]
  - Hospitalisation [Recovered/Resolved]
